FAERS Safety Report 21572000 (Version 1)
Quarter: 2022Q4

REPORT INFORMATION
  Report Type: Spontaneous
  Country: US (occurrence: US)
  Receive Date: 20221109
  Receipt Date: 20221109
  Transmission Date: 20230113
  Serious: No
  Sender: FDA-Public Use
  Company Number: US-TEVA-2022-US-2823000

PATIENT
  Age: 24 Year
  Sex: Female
  Weight: 58.97 kg

DRUGS (4)
  1. AJOVY [Suspect]
     Active Substance: FREMANEZUMAB-VFRM
     Indication: Migraine
     Dosage: FREMANEZUMAB-VFRM 225/1.5 MG/ML, MONTHLY, LAST DOSE OF AJOVY WAS ON 16SEP2022
     Route: 065
     Dates: start: 202201
  2. AJOVY [Suspect]
     Active Substance: FREMANEZUMAB-VFRM
  3. BC (ASPIRIN\CAFFEINE) [Concomitant]
     Active Substance: ASPIRIN\CAFFEINE
     Indication: Product used for unknown indication
     Route: 065
  4. TYLENOL WITH CODEINE [Concomitant]
     Active Substance: ACETAMINOPHEN\CODEINE PHOSPHATE
     Indication: Product used for unknown indication
     Route: 065

REACTIONS (4)
  - Maternal exposure during pregnancy [Unknown]
  - Device defective [Unknown]
  - Device leakage [Unknown]
  - Loss of personal independence in daily activities [Unknown]

NARRATIVE: CASE EVENT DATE: 20220101
